FAERS Safety Report 9474262 (Version 1)
Quarter: 2013Q3

REPORT INFORMATION
  Report Type: Spontaneous
  Country: FR (occurrence: FR)
  Receive Date: 20130823
  Receipt Date: 20130823
  Transmission Date: 20140515
  Serious: Yes (Hospitalization)
  Sender: FDA-Public Use
  Company Number: FR-BRISTOL-MYERS SQUIBB COMPANY-19186287

PATIENT
  Age: 55 Year
  Sex: Female

DRUGS (4)
  1. ABILIFY TABS [Suspect]
     Route: 048
     Dates: start: 20130614
  2. CORDARONE [Interacting]
     Indication: PULMONARY EMBOLISM
     Dosage: SCORED TABLET
     Route: 048
  3. CORDARONE [Interacting]
     Indication: CARDIAC FLUTTER
     Dosage: SCORED TABLET
     Route: 048
  4. LAROXYL [Interacting]
     Indication: DEPRESSION
     Dosage: FILM-COATED TABLET
     Route: 048

REACTIONS (5)
  - Orthostatic hypotension [Recovered/Resolved]
  - Amnesia [Recovered/Resolved]
  - Fracture [Recovered/Resolved]
  - Haematoma [Recovered/Resolved]
  - Drug interaction [Unknown]
